FAERS Safety Report 25920834 (Version 1)
Quarter: 2025Q4

REPORT INFORMATION
  Report Type: Spontaneous
  Country: EU (occurrence: EU)
  Receive Date: 20251014
  Receipt Date: 20251014
  Transmission Date: 20260118
  Serious: Yes (Hospitalization)
  Sender: PFIZER
  Company Number: None

PATIENT
  Age: 94 Year
  Sex: Female
  Weight: 63 kg

DRUGS (2)
  1. MEKTOVI [Suspect]
     Active Substance: BINIMETINIB
     Indication: Malignant melanoma stage III
     Dosage: 2 DF, BID (2/DAY)
     Route: 048
     Dates: start: 20250407, end: 20250522
  2. BRAFTOVI [Concomitant]
     Active Substance: ENCORAFENIB
     Indication: Malignant melanoma stage III
     Dosage: 225 MG
     Route: 048
     Dates: start: 20250407

REACTIONS (2)
  - Haemoperitoneum [Recovering/Resolving]
  - Splenic rupture [Recovering/Resolving]

NARRATIVE: CASE EVENT DATE: 20250521
